FAERS Safety Report 7441703-4 (Version None)
Quarter: 2011Q2

REPORT INFORMATION
  Report Type: 
  Country: None (occurrence: None)
  Receive Date: 20110419
  Receipt Date: 20110405
  Transmission Date: 20111010
  Serious: Yes (Other)
  Sender: FDA-Public Use
  Company Number: THRO-2011-00016

PATIENT
  Age: 29 Year
  Sex: Female

DRUGS (3)
  1. SURGIFOAM [Suspect]
     Indication: GLOSSOPHARYNGEAL NEURALGIA
  2. BOVINE THROMBIN(THROMBIN) [Suspect]
     Indication: GLOSSOPHARYNGEAL NEURALGIA
  3. RECOTHROM [Suspect]
     Indication: GLOSSOPHARYNGEAL NEURALGIA

REACTIONS (4)
  - HEADACHE [None]
  - VENOUS OCCLUSION [None]
  - IATROGENIC INJURY [None]
  - SINUS DISORDER [None]
